FAERS Safety Report 25363465 (Version 1)
Quarter: 2025Q2

REPORT INFORMATION
  Report Type: Spontaneous
  Country: CN (occurrence: CN)
  Receive Date: 20250527
  Receipt Date: 20250527
  Transmission Date: 20250717
  Serious: Yes (Hospitalization)
  Sender: MERCK SHARP & DOHME LLC
  Company Number: CN-009507513-2287459

PATIENT
  Age: 79 Year
  Sex: Male

DRUGS (1)
  1. KEYTRUDA [Suspect]
     Active Substance: PEMBROLIZUMAB
     Indication: Lung carcinoma cell type unspecified recurrent
     Route: 041
     Dates: start: 20240401, end: 20240401

REACTIONS (2)
  - Hepatic function abnormal [Recovering/Resolving]
  - Renal impairment [Unknown]

NARRATIVE: CASE EVENT DATE: 20250301
